FAERS Safety Report 17600416 (Version 3)
Quarter: 2020Q4

REPORT INFORMATION
  Report Type: Spontaneous
  Country: US (occurrence: US)
  Receive Date: 20200330
  Receipt Date: 20201125
  Transmission Date: 20210113
  Serious: Yes (Other)
  Sender: FDA-Public Use
  Company Number: US-PFIZER INC-2020123148

PATIENT
  Age: 36 Year
  Sex: Female

DRUGS (1)
  1. LYRICA [Suspect]
     Active Substance: PREGABALIN
     Dosage: 800 MG, DAILY (200 MG, EVERY 8 HOURS AND 100 MG, TWICE DAILY)
     Route: 048

REACTIONS (3)
  - Prescribed overdose [Unknown]
  - Epilepsy [Unknown]
  - Memory impairment [Unknown]

NARRATIVE: CASE EVENT DATE: 20200319
